FAERS Safety Report 4685429-9 (Version None)
Quarter: 2005Q2

REPORT INFORMATION
  Report Type: 
  Country: None (occurrence: None)
  Receive Date: 20050608
  Receipt Date: 20050602
  Transmission Date: 20051028
  Serious: Yes (Hospitalization)
  Sender: FDA-Public Use
  Company Number: PHFR2005GB02037

PATIENT
  Sex: Female

DRUGS (1)
  1. LEPONEX / CLOZARIL (CLOZAPINE) LEX+TAB [Suspect]
     Dosage: 25MG/DAY
     Route: 048

REACTIONS (2)
  - MANIA [None]
  - MENTAL DISORDER [None]
